FAERS Safety Report 6703289-9 (Version None)
Quarter: 2010Q2

REPORT INFORMATION
  Report Type: 
  Country: None (occurrence: None)
  Receive Date: 20100430
  Receipt Date: 20100416
  Transmission Date: 20101027
  Serious: Yes (Hospitalization)
  Sender: FDA-Public Use
  Company Number: US-RANBAXY-2010US-33257

PATIENT

DRUGS (44)
  1. GANCICLOVIR [Suspect]
     Indication: ANTIVIRAL PROPHYLAXIS
     Dosage: 1000 MG, 3 IN 1 D
     Route: 048
     Dates: start: 20080229, end: 20080307
  2. GANCICLOVIR [Suspect]
     Dosage: 1000 MG, 3 IN 1 D
     Dates: start: 20080309, end: 20080319
  3. GANCICLOVIR [Suspect]
     Dosage: 500 MG, 2 IN 1 D
     Dates: start: 20080320, end: 20080608
  4. MARIBAVIR PLACEBO [Suspect]
     Indication: ANTIVIRAL PROPHYLAXIS
     Dosage: 100 MG, 2 IN 1 D
     Route: 048
     Dates: start: 20080229, end: 20080307
  5. MARIBAVIR PLACEBO [Suspect]
     Dosage: 100 MG, 2 IN 1 D
     Dates: start: 20080309, end: 20080608
  6. ACYCLOVIR PLACEBO [Suspect]
     Indication: ANTIVIRAL PROPHYLAXIS
     Dosage: 400 MG, 2 IN 1 D
     Route: 048
     Dates: start: 20080229, end: 20080307
  7. ACYCLOVIR PLACEBO [Suspect]
     Dosage: 400 MG, 2 IN 1 D
     Dates: start: 20080309, end: 20080608
  8. LASIX [Concomitant]
     Indication: OEDEMA
     Dosage: UNK UNK,
     Route: 042
  9. CELLCEPT [Concomitant]
     Indication: PROPHYLAXIS AGAINST TRANSPLANT REJECTION
     Dosage: 500-1500 MG, 2 TO 4 TIMES A DAY
     Route: 065
     Dates: start: 20080222
  10. FK [Concomitant]
     Indication: PROPHYLAXIS AGAINST TRANSPLANT REJECTION
     Dosage: 1 - 8.5 MG, 2 IN 1 D
     Route: 048
     Dates: start: 20080225
  11. PREDNISONE [Concomitant]
     Indication: PROPHYLAXIS AGAINST TRANSPLANT REJECTION
     Dosage: 7.5 - 30 MG, 1 TO 2 TIMES PER DAY
     Route: 048
     Dates: start: 20080224
  12. BACTRIM [Concomitant]
     Indication: INFECTION PROPHYLAXIS
     Dosage: 1 TAB, 3 IN 1 WK
     Route: 048
     Dates: start: 20080225
  13. OSCAL [Concomitant]
     Indication: OSTEOPOROSIS PROPHYLAXIS
     Dosage: 500 MG 3 IN 1 D
     Route: 048
     Dates: start: 20080224
  14. COLACE [Concomitant]
     Indication: CONSTIPATION
     Dosage: 100 MG, TID
     Route: 048
     Dates: start: 20080223, end: 20080327
  15. NEXIUM [Concomitant]
     Indication: GASTROOESOPHAGEAL REFLUX DISEASE
     Dosage: UNK
     Route: 042
     Dates: start: 20080222, end: 20080223
  16. NEXIUM [Concomitant]
     Dosage: UNK
     Route: 048
     Dates: start: 20080224, end: 20080408
  17. NEXIUM [Concomitant]
     Dosage: UNK
     Route: 048
     Dates: start: 20080412, end: 20080501
  18. ASACOL [Concomitant]
     Indication: COLITIS ULCERATIVE
     Dosage: 1200 MG, 3 IN 1 D
     Route: 048
  19. NYSTATIN [Concomitant]
     Indication: ANTIFUNGAL PROPHYLAXIS
     Dosage: 5 ML, QID
     Route: 048
     Dates: start: 20080225
  20. M.V.I. [Concomitant]
     Indication: MEDICAL DIET
     Dosage: 1 IN 1 D
     Route: 048
     Dates: start: 20080223
  21. MIRALAX [Concomitant]
     Indication: CONSTIPATION
     Dosage: 1 IN 1
     Route: 048
     Dates: start: 20080302, end: 20080412
  22. SEROQUEL [Concomitant]
     Indication: SLEEP DISORDER
     Dosage: 1 IN 1 D
     Route: 048
     Dates: start: 20080225, end: 20080403
  23. ACETAMINOPHEN COD [Concomitant]
     Indication: PROCEDURAL PAIN
     Dosage: UNK
     Route: 048
     Dates: start: 20080514
  24. CEFAZOLIN [Concomitant]
     Indication: INFECTION PROPHYLAXIS
     Route: 042
     Dates: start: 20080404, end: 20080407
  25. CLONAZEPAM [Concomitant]
     Indication: ANXIETY
     Dosage: UNK
     Route: 048
     Dates: start: 20080312
  26. HYDROMORPHONE HCL [Concomitant]
     Indication: PROCEDURAL PAIN
     Route: 058
     Dates: start: 20080406, end: 20080407
  27. SENNA [Concomitant]
     Indication: CONSTIPATION
     Route: 048
     Dates: start: 20080406, end: 20080407
  28. SIMETHICONE [Concomitant]
     Indication: ABDOMINAL DISTENSION
     Route: 048
     Dates: start: 20080226, end: 20080407
  29. ZOLPIDEM [Concomitant]
     Indication: SLEEP DISORDER
     Route: 048
     Dates: start: 20080319, end: 20080324
  30. IMURAN [Concomitant]
     Indication: PROPHYLAXIS AGAINST TRANSPLANT REJECTION
     Dosage: 100 MG 1 IN 1 D
     Route: 048
     Dates: start: 20080413, end: 20080424
  31. ACETAMINOPHEN [Concomitant]
     Indication: PROCEDURAL PAIN
     Route: 048
     Dates: start: 20080313, end: 20080415
  32. ASPIRIN [Concomitant]
     Indication: PROPHYLAXIS
     Route: 048
     Dates: start: 20080224, end: 20080319
  33. FLORINEF [Concomitant]
     Indication: HYPONATRAEMIA
     Route: 048
     Dates: start: 20080308, end: 20080319
  34. LORAZEPAM [Concomitant]
     Indication: ANXIETY
     Route: 048
     Dates: start: 20080301, end: 20080320
  35. MAGNESIUM OXIDE [Concomitant]
     Indication: PROPHYLAXIS
     Dosage: UNK
     Route: 048
     Dates: start: 20080514
  36. MYFORTIC [Concomitant]
     Indication: PROPHYLAXIS AGAINST TRANSPLANT REJECTION
     Dosage: 360 MG, QD
     Route: 048
     Dates: start: 20080425
  37. OMEPRAZOLE [Concomitant]
     Indication: GASTROOESOPHAGEAL REFLUX DISEASE
     Route: 048
     Dates: start: 20080409, end: 20080412
  38. OXYCODONE [Concomitant]
     Indication: PROCEDURAL PAIN
     Route: 048
     Dates: start: 20080223, end: 20080316
  39. POTASSIUM GLUCONATE TAB [Concomitant]
     Indication: PROPHYLAXIS
     Dosage: UNK
     Route: 048
     Dates: start: 20080502
  40. PROTONIX [Concomitant]
     Indication: GASTROOESOPHAGEAL REFLUX DISEASE
     Dosage: UNK
     Route: 048
     Dates: start: 20080502
  41. URSODIOL [Concomitant]
     Indication: PROPHYLAXIS
     Route: 048
     Dates: end: 20080311
  42. ZOFRAN [Concomitant]
     Indication: NAUSEA
     Route: 042
     Dates: start: 20080404, end: 20080405
  43. CYTOXAN [Concomitant]
     Indication: TRANSPLANT REJECTION
     Dosage: 50 MG, QD
     Route: 048
     Dates: start: 20080614
  44. POTASSIUM CHLORIDE [Concomitant]
     Indication: HYPOKALAEMIA
     Route: 048
     Dates: start: 20080615

REACTIONS (8)
  - ANAEMIA [None]
  - COMPLICATIONS OF TRANSPLANTED LIVER [None]
  - DIARRHOEA [None]
  - HYPONATRAEMIA [None]
  - LIVER TRANSPLANT REJECTION [None]
  - MALAISE [None]
  - RENAL FAILURE ACUTE [None]
  - SPLENOMEGALY [None]
